FAERS Safety Report 17456649 (Version 2)
Quarter: 2020Q1

REPORT INFORMATION
  Report Type: Report from Study
  Country: TW (occurrence: TW)
  Receive Date: 20200225
  Receipt Date: 20200312
  Transmission Date: 20200409
  Serious: Yes (Other)
  Sender: FDA-Public Use
  Company Number: TW-UCBSA-2019027542

PATIENT
  Age: 36 Year
  Sex: Female
  Weight: 68 kg

DRUGS (5)
  1. ENOXAPARIN [Concomitant]
     Active Substance: ENOXAPARIN
     Indication: IN VITRO FERTILISATION
     Dosage: 60 MILLIGRAM, ONCE DAILY (QD)
     Route: 058
     Dates: start: 201905
  2. SILYMARINE [Concomitant]
     Indication: ALANINE AMINOTRANSFERASE
     Dosage: UNK
     Route: 048
     Dates: start: 201905
  3. CERTOLIZUMAB PEGOL [Suspect]
     Active Substance: CERTOLIZUMAB PEGOL
     Indication: RHEUMATOID ARTHRITIS
     Dosage: 400 MILLIGRAM, MONTHLY (QM)
     Route: 058
     Dates: start: 20180424
  4. PREDNISOLONE. [Concomitant]
     Active Substance: PREDNISOLONE
     Indication: RHEUMATOID ARTHRITIS
     Dosage: 5 MILLIGRAM, ONCE DAILY (QD)
     Route: 048
     Dates: start: 20180104
  5. IRON [Concomitant]
     Active Substance: IRON
     Indication: PREGNANCY
     Dosage: 150 MILLIGRAM, ONCE DAILY (QD)
     Route: 048
     Dates: start: 20180719

REACTIONS (3)
  - Maternal exposure during breast feeding [Unknown]
  - Maternal exposure before pregnancy [Unknown]
  - Premature delivery [Unknown]

NARRATIVE: CASE EVENT DATE: 20191225
